FAERS Safety Report 25353613 (Version 1)
Quarter: 2025Q2

REPORT INFORMATION
  Report Type: Spontaneous
  Country: GB (occurrence: GB)
  Receive Date: 20250523
  Receipt Date: 20250523
  Transmission Date: 20250716
  Serious: Yes (Other)
  Sender: BAUSCH AND LOMB
  Company Number: None

PATIENT
  Age: 44 Year
  Sex: Male
  Weight: 94 kg

DRUGS (1)
  1. PLENVU [Suspect]
     Active Substance: ASCORBIC ACID\POLYETHYLENE GLYCOL 3350\POTASSIUM CHLORIDE\SODIUM ASCORBATE\SODIUM CHLORIDE\SODIUM SU
     Indication: Sigmoidoscopy
     Dosage: 1 DOSAGE FORM, QD (NOT CONTAINING ASPARTAME)
     Route: 065
     Dates: start: 20250512, end: 20250512

REACTIONS (1)
  - Contraindicated product prescribed [Unknown]

NARRATIVE: CASE EVENT DATE: 20250512
